FAERS Safety Report 12995417 (Version 1)
Quarter: 2016Q4

REPORT INFORMATION
  Report Type: Spontaneous
  Country: None (occurrence: US)
  Receive Date: 20161202
  Receipt Date: 20161202
  Transmission Date: 20170207
  Serious: Yes (Other)
  Sender: FDA-Public Use
  Company Number: US-CETYLITE INDUSTRIES, INC.-1060351

PATIENT
  Age: 59 Year
  Sex: Female
  Weight: 55.46 kg

DRUGS (1)
  1. CETACAINE TOPICAL ANESTHETIC [Suspect]
     Active Substance: BENZOCAINE\BUTAMBEN\TETRACAINE HYDROCHLORIDE
     Indication: ANAESTHESIA PROCEDURE
     Route: 002
     Dates: start: 20160707, end: 20160707

REACTIONS (2)
  - Dyspnoea [Recovered/Resolved]
  - Blood pressure increased [Recovered/Resolved]

NARRATIVE: CASE EVENT DATE: 20160707
